FAERS Safety Report 21801446 (Version 4)
Quarter: 2023Q4

REPORT INFORMATION
  Report Type: Spontaneous
  Country: US (occurrence: US)
  Receive Date: 20221230
  Receipt Date: 20231010
  Transmission Date: 20240110
  Serious: No
  Sender: FDA-Public Use
  Company Number: US-BRISTOL-MYERS SQUIBB COMPANY-2022-160818

PATIENT
  Age: 63 Year
  Sex: Female

DRUGS (1)
  1. REVLIMID [Suspect]
     Active Substance: LENALIDOMIDE
     Indication: Plasma cell myeloma
     Route: 048
     Dates: start: 20200228

REACTIONS (7)
  - Nasopharyngitis [Unknown]
  - Diarrhoea [Unknown]
  - Infection [Unknown]
  - Coronavirus infection [Unknown]
  - Weight increased [Unknown]
  - Abdominal distension [Unknown]
  - White blood cell count decreased [Unknown]
